FAERS Safety Report 22196203 (Version 2)
Quarter: 2023Q2

REPORT INFORMATION
  Report Type: Report from Study
  Country: AU (occurrence: AU)
  Receive Date: 20230411
  Receipt Date: 20230418
  Transmission Date: 20230721
  Serious: Yes (Other)
  Sender: FDA-Public Use
  Company Number: AU-BAYER-2023A045185

PATIENT
  Sex: Female

DRUGS (1)
  1. EYLEA [Suspect]
     Active Substance: AFLIBERCEPT
     Indication: Neovascular age-related macular degeneration
     Dosage: INTRA-VITREAL; RIGHT EYE, SOLUTION FOR INJECTION, 40MG/ML
     Route: 031
     Dates: start: 20230121

REACTIONS (1)
  - Visual impairment [Unknown]
